FAERS Safety Report 7973518-2 (Version None)
Quarter: 2011Q4

REPORT INFORMATION
  Report Type: 
  Country: None (occurrence: None)
  Receive Date: 20111213
  Receipt Date: 20111205
  Transmission Date: 20120403
  Serious: Yes (Hospitalization)
  Sender: FDA-Public Use
  Company Number: US-UCBSA-047082

PATIENT
  Age: 81 Year
  Sex: Female
  Weight: 108.1 kg

DRUGS (26)
  1. CERTOLIZUMAB PEGOL [Suspect]
     Indication: RHEUMATOID ARTHRITIS
     Dosage: NO OF DOSES RECEIVED 4
     Route: 058
     Dates: start: 20111005, end: 20111129
  2. ACTOS [Concomitant]
     Indication: TYPE 2 DIABETES MELLITUS
     Dates: start: 20110101
  3. GLUCOTROL [Concomitant]
     Indication: TYPE 2 DIABETES MELLITUS
     Dates: start: 20070101
  4. ASCORBIC ACID [Concomitant]
     Indication: MINERAL SUPPLEMENTATION
     Dates: start: 20050101
  5. HALDOL [Concomitant]
     Indication: TARDIVE DYSKINESIA
     Dates: start: 20100101
  6. VOLTAREN [Concomitant]
     Indication: OSTEOARTHRITIS
     Dosage: 1 APPLICAITON AS NESSECARY;
     Dates: start: 20110401
  7. GLIPIZIDE [Concomitant]
     Indication: TYPE 2 DIABETES MELLITUS
     Dates: start: 20110101
  8. METHOTREXATE [Concomitant]
     Indication: RHEUMATOID ARTHRITIS
     Dates: start: 20101101
  9. CARDIZEM [Concomitant]
     Indication: HYPERTENSION
     Dates: start: 20061101
  10. ASPIRIN [Concomitant]
     Indication: CARDIOVASCULAR EVENT PROPHYLAXIS
     Dates: start: 20061101
  11. CERTOLIZUMAB PEGOL [Suspect]
     Dosage: NO OF DOSES RECEIVED 3
     Route: 058
     Dates: start: 20110823, end: 20110920
  12. SERTRALINE HYDROCHLORIDE [Concomitant]
     Indication: DEPRESSION
     Dates: start: 20110101
  13. E.S. TYLENOL [Concomitant]
     Indication: RHEUMATOID ARTHRITIS
     Dosage: AS NESSECARY
     Dates: start: 20090101
  14. ADVAIR DISKUS 100/50 [Concomitant]
     Indication: ASTHMA
     Dosage: DOSE PER INTAKE : 1 PUFF, FORM: INHALATION
     Dates: start: 20060101
  15. LISINOPRIL [Concomitant]
     Indication: HYPERTENSION
     Dates: start: 20081201
  16. VITAMIN D [Concomitant]
     Indication: MINERAL SUPPLEMENTATION
     Dates: start: 20110607
  17. ZANTAC [Concomitant]
     Indication: GASTROOESOPHAGEAL REFLUX DISEASE
     Dosage: EVERY NIGHT AT BEDTIME
     Dates: start: 20100101
  18. FOLIC ACID [Concomitant]
     Indication: MINERAL SUPPLEMENTATION
     Dates: start: 20080201
  19. SIMVASTATIN [Concomitant]
     Indication: HYPERCHOLESTEROLAEMIA
     Dates: start: 20080401
  20. FORTEO [Concomitant]
     Indication: OSTEOPOROSIS
     Dates: start: 20090801
  21. VICODIN [Concomitant]
     Indication: RHEUMATOID ARTHRITIS
     Dosage: DOSE PER INTAKE : 1 TAB; FREQENECY : AS NEEDED
     Dates: start: 20110401
  22. METFORMIN HCL [Concomitant]
     Indication: TYPE 2 DIABETES MELLITUS
     Dates: start: 20100601
  23. PLAVIX [Concomitant]
     Indication: CORONARY ARTERY DISEASE
     Dates: start: 20061101
  24. ALLEGRA [Concomitant]
     Indication: SEASONAL ALLERGY
     Dates: start: 20030101
  25. VITAMIN D [Concomitant]
     Dates: start: 20110607
  26. VISTARIL [Concomitant]
     Indication: SEASONAL ALLERGY
     Dosage: AS NESSECARY
     Dates: start: 20030101

REACTIONS (1)
  - URINARY TRACT INFECTION [None]
